FAERS Safety Report 10086061 (Version 1)
Quarter: 2014Q2

REPORT INFORMATION
  Report Type: Spontaneous
  Country: None (occurrence: None)
  Receive Date: 20140415
  Receipt Date: 20140415
  Transmission Date: 20141212
  Serious: Yes (Other)
  Sender: FDA-Public Use
  Company Number: AUR-APL-2010-00290

PATIENT
  Age: 9 Year
  Sex: Female

DRUGS (2)
  1. TOPIRAMATE (TOPIRAMATE) [Suspect]
     Indication: EPILEPSY
     Dosage: 0.5 MG/KG (ONCE IN THE NIGHT), UNKNOWN
  2. LEVETIRACETAM (LEVETIRACETAM) [Concomitant]

REACTIONS (2)
  - Allodynia [None]
  - Convulsion [None]
